FAERS Safety Report 9329114 (Version 1)
Quarter: 2013Q2

REPORT INFORMATION
  Report Type: Spontaneous
  Country: US (occurrence: US)
  Receive Date: 20130604
  Receipt Date: 20130604
  Transmission Date: 20140414
  Serious: Yes (Death)
  Sender: FDA-Public Use
  Company Number: US-GLAXOSMITHKLINE-A1025543A

PATIENT
  Age: 66 Year
  Sex: Male

DRUGS (6)
  1. HYCAMTIN [Suspect]
     Indication: BRONCHIAL CARCINOMA
     Dosage: 4.5MG SEE DOSAGE TEXT
     Route: 048
     Dates: start: 20130329, end: 20130517
  2. HYDROCODONE + ACETAMINOPHEN [Concomitant]
  3. DEXAMETHASONE [Concomitant]
  4. TEMAZEPAM [Concomitant]
  5. OMEPRAZOLE [Concomitant]
  6. WELLBUTRIN [Concomitant]

REACTIONS (1)
  - Death [Fatal]
